FAERS Safety Report 24524350 (Version 1)
Quarter: 2024Q4

REPORT INFORMATION
  Report Type: Spontaneous
  Country: US (occurrence: US)
  Receive Date: 20241018
  Receipt Date: 20241018
  Transmission Date: 20250115
  Serious: Yes (Hospitalization)
  Sender: PRINSTON PHARMACEUTICAL
  Company Number: US-PRINSTON PHARMACEUTICAL INC.-2024PRN00391

PATIENT
  Age: 16 Year
  Sex: Female

DRUGS (2)
  1. BUPROPION HYDROCHLORIDE [Suspect]
     Active Substance: BUPROPION HYDROCHLORIDE
     Dosage: 9-12 G (30-40 TABLETS)
  2. ALCOHOL [Suspect]
     Active Substance: ALCOHOL

REACTIONS (3)
  - Brain stem syndrome [Recovering/Resolving]
  - Areflexia [Recovering/Resolving]
  - Overdose [Unknown]
